FAERS Safety Report 8547127-0 (Version None)
Quarter: 2012Q3

REPORT INFORMATION
  Report Type: 
  Country: None (occurrence: None)
  Receive Date: 20120727
  Receipt Date: 20120216
  Transmission Date: 20120928
  Serious: No
  Sender: FDA-Public Use
  Company Number: US-ASTRAZENECA-2012SE11404

PATIENT
  Age: 29 Year
  Sex: Female

DRUGS (1)
  1. SEROQUEL XR [Suspect]
     Route: 048

REACTIONS (5)
  - MIGRAINE [None]
  - FORMICATION [None]
  - DRUG DOSE OMISSION [None]
  - MALAISE [None]
  - HOT FLUSH [None]
